FAERS Safety Report 5611272-X (Version None)
Quarter: 2008Q1

REPORT INFORMATION
  Report Type: 
  Country: None (occurrence: None)
  Receive Date: 20080201
  Receipt Date: 20080122
  Transmission Date: 20080703
  Serious: Yes (Disabling)
  Sender: FDA-Public Use
  Company Number: JP-PFIZER INC-2008007186

PATIENT
  Age: 83 Year
  Sex: Female

DRUGS (4)
  1. ZYVOX [Suspect]
     Indication: PNEUMONIA STAPHYLOCOCCAL
     Dosage: DAILY DOSE:1200MG
     Route: 042
     Dates: start: 20080104, end: 20080111
  2. FLEMPHYLINE [Concomitant]
  3. ENALAPRIL MALEATE [Concomitant]
  4. PARIET [Concomitant]

REACTIONS (1)
  - HYPONATRAEMIA [None]
